FAERS Safety Report 7964663-6 (Version None)
Quarter: 2011Q4

REPORT INFORMATION
  Report Type: 
  Country: None (occurrence: None)
  Receive Date: 20111208
  Receipt Date: 20111206
  Transmission Date: 20120403
  Serious: Yes (Death, Hospitalization)
  Sender: FDA-Public Use
  Company Number: DE-SANOFI-AVENTIS-2011SA077376

PATIENT
  Age: 69 Year
  Sex: Male
  Weight: 62 kg

DRUGS (6)
  1. BISOPROLOL FUMARATE [Concomitant]
     Dosage: DAILY DOSE: 1-0-0.5
     Route: 048
  2. JEVTANA KIT [Suspect]
     Route: 051
     Dates: start: 20110804, end: 20110804
  3. FENTANYL-100 [Concomitant]
     Indication: PAIN
     Route: 062
  4. RAMIPRIL [Concomitant]
     Route: 048
  5. FUROSEMIDE [Concomitant]
     Dosage: DAILY DOSE: 1-0.5-0
     Route: 048
  6. AMITRIPTYLINE HCL [Concomitant]
     Route: 048

REACTIONS (2)
  - RENAL FAILURE [None]
  - HYPERKALAEMIA [None]
